FAERS Safety Report 10172323 (Version 2)
Quarter: 2014Q2

REPORT INFORMATION
  Report Type: Spontaneous
  Country: US (occurrence: US)
  Receive Date: 20140515
  Receipt Date: 20140609
  Transmission Date: 20141212
  Serious: Yes (Other)
  Sender: FDA-Public Use
  Company Number: US-BIOGENIDEC-2014BI044943

PATIENT
  Age: 68 Year
  Sex: Female

DRUGS (5)
  1. AVONEX [Suspect]
     Indication: MULTIPLE SCLEROSIS
     Route: 030
     Dates: start: 2009
  2. AVONEX [Suspect]
     Indication: MULTIPLE SCLEROSIS
     Route: 030
     Dates: start: 20130131
  3. PAROXETINE HCL [Concomitant]
  4. LATANOPROST [Concomitant]
  5. DORZOLAMIDE HCL [Concomitant]

REACTIONS (1)
  - Retinal detachment [Unknown]
